FAERS Safety Report 7901219 (Version 4)
Quarter: 2013Q1

REPORT INFORMATION
  Report Type: Report from Study
  Country: US (occurrence: US)
  Receive Date: 20110415
  Receipt Date: 20130225
  Transmission Date: 20140127
  Serious: Yes (Death, Hospitalization)
  Sender: FDA-Public Use
  Company Number: US-BRISTOL-MYERS SQUIBB COMPANY-15657349

PATIENT
  Age: 57 Year
  Sex: Female
  Weight: 106 kg

DRUGS (9)
  1. CETUXIMAB [Suspect]
     Indication: HEAD AND NECK CANCER
     Dosage: NO OF INF:8?LAST DOSE-24JAN11
     Route: 042
     Dates: start: 20110124
  2. CISPLATIN [Suspect]
     Indication: HEAD AND NECK CANCER
     Dosage: NO OF INF:3?LAST DOSE-17MAR11
     Route: 042
     Dates: start: 20110124
  3. 5-FLUOROURACIL [Suspect]
     Indication: HEAD AND NECK CANCER
     Dosage: NO OF INF:3?LAST DOSE-21MAR11
     Route: 042
     Dates: start: 20110124
  4. SYNTHROID [Concomitant]
     Indication: HYPOTHYROIDISM
  5. PROZAC [Concomitant]
     Indication: DEPRESSION
  6. LEVOTHYROXINE [Concomitant]
  7. POTASSIUM CHLORIDE [Concomitant]
  8. BENADRYL [Concomitant]
  9. LEVOTHYROXINE [Concomitant]

REACTIONS (2)
  - Sepsis [Fatal]
  - Neutropenia [Not Recovered/Not Resolved]
